FAERS Safety Report 6833771-5 (Version None)
Quarter: 2010Q3

REPORT INFORMATION
  Report Type: 
  Country: None (occurrence: None)
  Receive Date: 20100712
  Receipt Date: 20070413
  Transmission Date: 20110219
  Serious: No
  Sender: FDA-Public Use
  Company Number: US-PFIZER INC-2007026928

PATIENT
  Sex: Female
  Weight: 62.6 kg

DRUGS (5)
  1. CHANTIX [Suspect]
     Indication: SMOKING CESSATION THERAPY
     Dates: start: 20070326
  2. PLAVIX [Concomitant]
  3. ZOLPIDEM TARTRATE [Concomitant]
     Indication: DEPRESSION
  4. ZOLPIDEM TARTRATE [Concomitant]
     Indication: INSOMNIA
  5. SENNA [Concomitant]
     Indication: CONSTIPATION

REACTIONS (4)
  - ABDOMINAL DISCOMFORT [None]
  - CONSTIPATION [None]
  - INSOMNIA [None]
  - NAUSEA [None]
